FAERS Safety Report 8776778 (Version 4)
Quarter: 2013Q4

REPORT INFORMATION
  Report Type: Report from Study
  Country: US (occurrence: US)
  Receive Date: 20120910
  Receipt Date: 20131015
  Transmission Date: 20140711
  Serious: Yes (Hospitalization)
  Sender: FDA-Public Use
  Company Number: US-VERTEX PHARMACEUTICAL INC.-2012-020628

PATIENT
  Sex: Female
  Weight: 123 kg

DRUGS (1)
  1. VX-770 [Suspect]
     Indication: CYSTIC FIBROSIS
     Dosage: 150 MG, BID
     Route: 048
     Dates: start: 20120815

REACTIONS (4)
  - Infection [Recovered/Resolved]
  - Exposure during pregnancy [Recovered/Resolved]
  - Oral candidiasis [Unknown]
  - Vulvovaginal candidiasis [Unknown]
